FAERS Safety Report 5380592-9 (Version None)
Quarter: 2007Q3

REPORT INFORMATION
  Report Type: 
  Country: None (occurrence: None)
  Receive Date: 20070706
  Receipt Date: 20070629
  Transmission Date: 20080115
  Serious: Yes (Other)
  Sender: FDA-Public Use
  Company Number: JP-ASTRAZENECA-2007AP03993

PATIENT
  Age: 36 Year
  Sex: Female

DRUGS (6)
  1. ARIMIDEX [Suspect]
     Indication: BREAST CANCER
     Route: 048
  2. TAMOXIFEN [Suspect]
     Indication: BREAST CANCER
     Route: 048
  3. EPIRUBICIN [Concomitant]
  4. CYCLOPHOSPHAMIDE [Concomitant]
  5. TRASTUZUMAB [Concomitant]
  6. PACLITAXEL [Concomitant]

REACTIONS (4)
  - AMENORRHOEA [None]
  - METASTASES TO BONE [None]
  - METASTASES TO LIVER [None]
  - POLYARTHRITIS [None]
